FAERS Safety Report 16954472 (Version 1)
Quarter: 2019Q4

REPORT INFORMATION
  Report Type: Spontaneous
  Country: US (occurrence: US)
  Receive Date: 20191023
  Receipt Date: 20191023
  Transmission Date: 20200122
  Serious: No
  Sender: FDA-Public Use
  Company Number: US-ELI_LILLY_AND_COMPANY-US201910004729

PATIENT
  Sex: Female

DRUGS (3)
  1. HUMATROPE [Suspect]
     Active Substance: SOMATROPIN
     Indication: PRODUCT USED FOR UNKNOWN INDICATION
     Dosage: UNK, UNKNOWN
     Route: 065
     Dates: start: 201909
  2. HUMATROPE [Suspect]
     Active Substance: SOMATROPIN
     Dosage: 0.03 MG, UNKNOWN
     Route: 065
     Dates: start: 20190916
  3. HUMATROPE [Suspect]
     Active Substance: SOMATROPIN
     Dosage: 0.04 MG, UNKNOWN
     Route: 065
     Dates: start: 20191002

REACTIONS (2)
  - Product preparation issue [Unknown]
  - Incorrect dose administered [Unknown]
